FAERS Safety Report 25945076 (Version 1)
Quarter: 2025Q4

REPORT INFORMATION
  Report Type: Spontaneous
  Country: US (occurrence: US)
  Receive Date: 20251021
  Receipt Date: 20251021
  Transmission Date: 20260118
  Serious: No
  Sender: Phathom Pharmaceuticals
  Company Number: US-PHATHOM PHARMACEUTICALS INC.-2025PHT02338

PATIENT
  Age: 51 Year
  Sex: Female

DRUGS (10)
  1. VOQUEZNA [Suspect]
     Active Substance: VONOPRAZAN FUMARATE
     Indication: Gastrooesophageal reflux disease
     Dosage: 10 MG, 1X/DAY
     Route: 048
     Dates: start: 20250811, end: 20250821
  2. MOUNJARO [Concomitant]
     Active Substance: TIRZEPATIDE
  3. METFORMIN [Concomitant]
     Active Substance: METFORMIN HYDROCHLORIDE
  4. BENZTROPINE [Concomitant]
     Active Substance: BENZTROPINE
  5. HALOPERIDOL [Concomitant]
     Active Substance: HALOPERIDOL
  6. ROSUVASTATIN [Concomitant]
     Active Substance: ROSUVASTATIN
  7. LOSARTAN [Concomitant]
     Active Substance: LOSARTAN
  8. IRON [Concomitant]
     Active Substance: IRON
  9. ABILIFY [Concomitant]
     Active Substance: ARIPIPRAZOLE
  10. ZOLOFT [Concomitant]
     Active Substance: SERTRALINE HYDROCHLORIDE

REACTIONS (3)
  - Muscle spasms [Unknown]
  - Malaise [Unknown]
  - Nausea [Unknown]

NARRATIVE: CASE EVENT DATE: 20250801
